FAERS Safety Report 4285872-6 (Version None)
Quarter: 2004Q1

REPORT INFORMATION
  Report Type: 
  Country: None (occurrence: None)
  Receive Date: 20040204
  Receipt Date: 20040204
  Transmission Date: 20041129
  Serious: Yes (Hospitalization)
  Sender: FDA-Public Use
  Company Number: None

PATIENT
  Age: 79 Year
  Sex: Male
  Weight: 64.6 kg

DRUGS (2)
  1. DOCETAXEL [Suspect]
     Indication: PROSTATE CANCER
     Dosage: 75 MG/M2 IV 1X
     Route: 042
     Dates: start: 20040120
  2. LUPRON DEPOT [Concomitant]

REACTIONS (1)
  - FEBRILE NEUTROPENIA [None]
